FAERS Safety Report 9304483 (Version 2)
Quarter: 2013Q2

REPORT INFORMATION
  Report Type: Spontaneous
  Country: US (occurrence: US)
  Receive Date: 20130523
  Receipt Date: 20130528
  Transmission Date: 20140414
  Serious: No
  Sender: FDA-Public Use
  Company Number: US-009507513-1305USA011964

PATIENT
  Age: 88 Year
  Sex: Female

DRUGS (1)
  1. VYTORIN [Suspect]
     Dosage: 10/80 MG
     Route: 048

REACTIONS (1)
  - Fall [Recovering/Resolving]
